FAERS Safety Report 9700869 (Version 1)
Quarter: 2013Q4

REPORT INFORMATION
  Report Type: Spontaneous
  Country: US (occurrence: US)
  Receive Date: 20131121
  Receipt Date: 20131121
  Transmission Date: 20140711
  Serious: No
  Sender: FDA-Public Use
  Company Number: US-PFIZER INC-2013328550

PATIENT
  Sex: Female

DRUGS (1)
  1. DICLOFENAC EPOLAMINE [Suspect]
     Dosage: UNK

REACTIONS (3)
  - Abdominal discomfort [Unknown]
  - Feeling abnormal [Unknown]
  - Drug intolerance [Unknown]
